FAERS Safety Report 20080181 (Version 2)
Quarter: 2022Q1

REPORT INFORMATION
  Report Type: Spontaneous
  Country: FI (occurrence: FI)
  Receive Date: 20211117
  Receipt Date: 20220111
  Transmission Date: 20220423
  Serious: Yes (Other)
  Sender: FDA-Public Use
  Company Number: FI-UCBSA-2021053554

PATIENT
  Age: 63 Year
  Sex: Female

DRUGS (7)
  1. KEPPRA [Suspect]
     Active Substance: LEVETIRACETAM
     Indication: Product used for unknown indication
     Dosage: UNK
  2. DEXAMETHASONE [Concomitant]
     Active Substance: DEXAMETHASONE
     Indication: Product used for unknown indication
  3. MEROPENEM [Concomitant]
     Active Substance: MEROPENEM
     Indication: Abscess
     Route: 042
  4. CASPOFUNGIN [Concomitant]
     Active Substance: CASPOFUNGIN
     Indication: Fungal infection
  5. OXYGEN [Concomitant]
     Active Substance: OXYGEN
     Indication: Product used for unknown indication
  6. CEFTRIAXONE [Concomitant]
     Active Substance: CEFTRIAXONE
     Indication: Product used for unknown indication
     Route: 042
  7. VANCOMYCIN [Concomitant]
     Active Substance: VANCOMYCIN
     Indication: Infection
     Dosage: 1 GRAM, 2X/DAY (BID) (EVERY 12 HR)
     Route: 042

REACTIONS (9)
  - Brain abscess [Recovered/Resolved]
  - Neutropenia [Unknown]
  - Tooth abscess [Unknown]
  - Tooth extraction [Unknown]
  - Streptococcal infection [Unknown]
  - Tongue discolouration [Unknown]
  - Clumsiness [Unknown]
  - Liver function test increased [Unknown]
  - Pyrexia [Recovered/Resolved]
